FAERS Safety Report 4377125-2 (Version None)
Quarter: 2004Q2

REPORT INFORMATION
  Report Type: 
  Country: None (occurrence: None)
  Receive Date: 20040608
  Receipt Date: 20040526
  Transmission Date: 20050107
  Serious: Yes (Life-Threatening)
  Sender: FDA-Public Use
  Company Number: 04H-056-0262274-00

PATIENT
  Age: 11 Year
  Sex: Male

DRUGS (6)
  1. METHYLPREDNISOLONE SODIUM SUCCINATE [Suspect]
  2. FILGRASTIM [Suspect]
     Dosage: 210 MCG, 1 IN 1 D, INTRAVENOUS
     Route: 042
     Dates: start: 20040313, end: 20040325
  3. ACYCLOVIR [Suspect]
     Dates: start: 20040401, end: 20040401
  4. OMEPRAZOLE [Suspect]
  5. FLUCONAZOLE [Suspect]
  6. CYCLOSPORINE [Suspect]

REACTIONS (4)
  - BRONCHOSPASM [None]
  - DYSPNOEA [None]
  - OXYGEN SATURATION DECREASED [None]
  - TACHYCARDIA [None]
